FAERS Safety Report 13205954 (Version 4)
Quarter: 2017Q2

REPORT INFORMATION
  Report Type: Report from Study
  Country: US (occurrence: US)
  Receive Date: 20170209
  Receipt Date: 20170628
  Transmission Date: 20170830
  Serious: Yes (Other)
  Sender: FDA-Public Use
  Company Number: US-SAOL THERAPEUTICS-2017SAO00246

PATIENT
  Age: 66 Year
  Sex: Female

DRUGS (14)
  1. COMPOUNDED BACLOFEN [Suspect]
     Active Substance: BACLOFEN
     Dosage: 19.99 ?G, \DAY
     Route: 037
     Dates: start: 20161028, end: 20170403
  2. FENTANYL. [Suspect]
     Active Substance: FENTANYL
     Dosage: 30.02 ?G, \DAY
     Route: 037
     Dates: start: 20161020, end: 20161028
  3. FENTANYL. [Suspect]
     Active Substance: FENTANYL
     Dosage: 34.98 ?G, \DAY
     Route: 037
     Dates: start: 20170126, end: 20170403
  4. COMPOUNDED BACLOFEN [Suspect]
     Active Substance: BACLOFEN
     Dosage: 22.49 ?G, \DAY
     Route: 037
     Dates: start: 20170403
  5. COMPOUNDED BACLOFEN [Suspect]
     Active Substance: BACLOFEN
     Dosage: 46.19 ?G, \DAY
     Route: 037
     Dates: start: 20170403
  6. COMPOUNDED BACLOFEN [Suspect]
     Active Substance: BACLOFEN
     Dosage: 24.01 ?G, \DAY
     Route: 037
     Dates: start: 20161020, end: 20161028
  7. FENTANYL. [Suspect]
     Active Substance: FENTANYL
     Dosage: 44.76 ?G, \DAY
     Route: 037
     Dates: start: 20161020, end: 20161028
  8. COMPOUNDED BACLOFEN [Suspect]
     Active Substance: BACLOFEN
     Dosage: 31.81 ?G, \DAY
     Route: 037
     Dates: start: 20161028, end: 20170403
  9. FENTANYL. [Suspect]
     Active Substance: FENTANYL
     Dosage: 24.98 ?G, \DAY
     Route: 037
     Dates: start: 20161028, end: 20170126
  10. FENTANYL. [Suspect]
     Active Substance: FENTANYL
     Dosage: 39.77 ?G, \DAY
     Route: 037
     Dates: start: 20161028, end: 20170126
  11. HYDROMORPHONE [Suspect]
     Active Substance: HYDROMORPHONE
     Dosage: 56.21 ?G, \DAY
     Route: 037
     Dates: start: 20170403
  12. COMPOUNDED BACLOFEN [Suspect]
     Active Substance: BACLOFEN
     Dosage: 35.81 ?G, \DAY
     Route: 037
     Dates: start: 20161020, end: 20161028
  13. FENTANYL. [Suspect]
     Active Substance: FENTANYL
     Dosage: 55.67 ?G, \DAY
     Route: 037
     Dates: start: 20170126, end: 20170403
  14. HYDROMORPHONE [Suspect]
     Active Substance: HYDROMORPHONE
     Dosage: 115.47 ?G, \DAY
     Route: 037
     Dates: start: 20170403

REACTIONS (7)
  - Implant site extravasation [Unknown]
  - Pain [Unknown]
  - Device dislocation [Unknown]
  - Catheter site pain [Unknown]
  - Muscle spasticity [Unknown]
  - Device kink [Recovered/Resolved]
  - Therapeutic response decreased [Unknown]

NARRATIVE: CASE EVENT DATE: 20170320
